FAERS Safety Report 4837836-9 (Version None)
Quarter: 2005Q4

REPORT INFORMATION
  Report Type: 
  Country: None (occurrence: None)
  Receive Date: 20051128
  Receipt Date: 20051004
  Transmission Date: 20060501
  Serious: Yes (Hospitalization, Other)
  Sender: FDA-Public Use
  Company Number: US-MERCK-0510USA03099

PATIENT
  Age: 67 Year
  Sex: Female
  Weight: 121 kg

DRUGS (17)
  1. VIOXX [Suspect]
     Indication: GOUT
     Route: 048
     Dates: start: 20020101, end: 20030101
  2. VIOXX [Suspect]
     Indication: MUSCULOSKELETAL PAIN
     Route: 048
     Dates: start: 20020101, end: 20030101
  3. TERAZOSIN HYDROCHLORIDE [Concomitant]
     Route: 065
  4. PROMETHAZINE [Concomitant]
     Route: 065
  5. MECLIZINE [Concomitant]
     Route: 065
  6. PROTONIX [Concomitant]
     Route: 065
  7. CLINDAMYCIN [Concomitant]
     Route: 065
  8. ZAROXOLYN [Concomitant]
     Route: 065
  9. LORAZEPAM [Concomitant]
     Route: 065
  10. ZOLOFT [Concomitant]
     Route: 065
  11. KLOR-CON [Concomitant]
     Route: 065
  12. TOPROL-XL [Concomitant]
     Route: 065
  13. SYNTHROID [Concomitant]
     Route: 065
  14. FUROSEMIDE [Concomitant]
     Route: 065
  15. ALLOPURINOL [Concomitant]
     Route: 065
  16. COZAAR [Concomitant]
     Route: 065
  17. NORVASC [Suspect]
     Route: 065

REACTIONS (14)
  - ABDOMINAL PAIN [None]
  - CARDIAC FAILURE CONGESTIVE [None]
  - CEREBROVASCULAR ACCIDENT [None]
  - CONSTIPATION [None]
  - CORONARY ARTERY DISEASE [None]
  - FALL [None]
  - HAEMATOMA [None]
  - HEADACHE [None]
  - INTRACRANIAL ANEURYSM [None]
  - LACERATION [None]
  - MUSCULOSKELETAL PAIN [None]
  - OEDEMA PERIPHERAL [None]
  - SLEEP APNOEA SYNDROME [None]
  - VERTIGO [None]
